FAERS Safety Report 4917073-X (Version None)
Quarter: 2006Q1

REPORT INFORMATION
  Report Type: 
  Country: None (occurrence: None)
  Receive Date: 20060214
  Receipt Date: 20060202
  Transmission Date: 20060701
  Serious: Yes (Hospitalization, Other)
  Sender: FDA-Public Use
  Company Number: 2006-CZ-00601

PATIENT
  Age: 41 Year
  Sex: Female

DRUGS (5)
  1. IPRATROPIUM 250MCG/ML STERI-NEB, IPRATROPIUM 500 MICROGRAMS/2ML (IPRAT [Suspect]
     Dosage: 500 MCG, RESPIRATORY (INHALATION)
     Route: 055
     Dates: start: 20051030, end: 20051031
  2. SALBUTAMOL EASI-BREATHE INHALER (SALBUTAMOL) [Suspect]
     Dosage: 5 MG, RESPIRATORY (INHALATION)
     Route: 055
     Dates: start: 20051030, end: 20051031
  3. AMINOPHYLLINE TABLETS 100 MG (THEOPHYLLINE) [Suspect]
     Dosage: LESS THAN 500 MG, INTRAVENOUS BOLUS
     Route: 040
     Dates: start: 20051030, end: 20051030
  4. CHLORPHENIRAMINE MALEATE [Concomitant]
  5. LORAZEPAM [Concomitant]

REACTIONS (2)
  - AMNESIA [None]
  - CONFUSIONAL STATE [None]
